FAERS Safety Report 19284854 (Version 1)
Quarter: 2021Q2

REPORT INFORMATION
  Report Type: Spontaneous
  Country: US (occurrence: US)
  Receive Date: 20210521
  Receipt Date: 20210521
  Transmission Date: 20210717
  Serious: Yes (Hospitalization)
  Sender: FDA-Public Use
  Company Number: None

PATIENT
  Sex: Female

DRUGS (1)
  1. ROZLYTREK [Suspect]
     Active Substance: ENTRECTINIB
     Indication: LUNG NEOPLASM MALIGNANT
     Route: 048

REACTIONS (9)
  - Brain neoplasm [None]
  - Dysarthria [None]
  - Vomiting [None]
  - Peripheral swelling [None]
  - Therapy change [None]
  - Swelling face [None]
  - Nausea [None]
  - Eye swelling [None]
  - Blood sodium decreased [None]
